FAERS Safety Report 25375609 (Version 1)
Quarter: 2025Q2

REPORT INFORMATION
  Report Type: Spontaneous
  Country: US (occurrence: US)
  Receive Date: 20250529
  Receipt Date: 20250529
  Transmission Date: 20250717
  Serious: No
  Sender: SANOFI AVENTIS
  Company Number: US-SA-2025SA151583

PATIENT
  Age: 60 Year
  Sex: Male
  Weight: 106 kg

DRUGS (9)
  1. DUPIXENT [Suspect]
     Active Substance: DUPILUMAB
     Indication: Dermatitis atopic
     Dosage: 300 MG, QOW
     Route: 058
  2. HYDROCORTISONE [Concomitant]
     Active Substance: HYDROCORTISONE
  3. FLUCONAZOLE [Concomitant]
     Active Substance: FLUCONAZOLE
  4. FLUOROURACIL [Concomitant]
     Active Substance: FLUOROURACIL
  5. KETOCONAZOLE [Concomitant]
     Active Substance: KETOCONAZOLE
  6. PREDNISONE [Concomitant]
     Active Substance: PREDNISONE
  7. LORATADINE [Concomitant]
     Active Substance: LORATADINE
  8. TACROLIMUS [Concomitant]
     Active Substance: TACROLIMUS
  9. CLOBETASOL PROPIONATE [Concomitant]
     Active Substance: CLOBETASOL PROPIONATE

REACTIONS (1)
  - Drug ineffective [Unknown]

NARRATIVE: CASE EVENT DATE: 20240201
